FAERS Safety Report 10752276 (Version 2)
Quarter: 2015Q1

REPORT INFORMATION
  Report Type: Spontaneous
  Country: US (occurrence: US)
  Receive Date: 20150130
  Receipt Date: 20150213
  Transmission Date: 20150721
  Serious: Yes (Other)
  Sender: FDA-Public Use
  Company Number: US-TEVA-537077USA

PATIENT
  Sex: Female

DRUGS (1)
  1. GLIMEPIRIDE. [Suspect]
     Active Substance: GLIMEPIRIDE
     Indication: TYPE 2 DIABETES MELLITUS
     Route: 065

REACTIONS (11)
  - Iritis [Recovering/Resolving]
  - Staphylococcal infection [Unknown]
  - Photosensitivity reaction [Unknown]
  - Photophobia [Unknown]
  - Eye irritation [Unknown]
  - Hypoaesthesia [Unknown]
  - Ocular hyperaemia [Unknown]
  - Weight increased [Unknown]
  - Adverse event [Unknown]
  - Eye swelling [Unknown]
  - Episcleritis [Recovering/Resolving]
